FAERS Safety Report 7472965-5 (Version None)
Quarter: 2011Q2

REPORT INFORMATION
  Report Type: 
  Country: None (occurrence: None)
  Receive Date: 20110511
  Receipt Date: 20110505
  Transmission Date: 20111010
  Serious: Yes (Hospitalization, Disabling, Other)
  Sender: FDA-Public Use
  Company Number: US-ROCHE-473697

PATIENT
  Sex: Female
  Weight: 47.2 kg

DRUGS (4)
  1. ACCUTANE [Suspect]
     Indication: ACNE
     Dosage: PRESCRIPTION WAS FILLED 6 TIMES
     Route: 048
     Dates: start: 20021201, end: 20030801
  2. CLARAVIS [Suspect]
     Route: 048
     Dates: start: 20030701
  3. AMNESTEEM [Suspect]
     Route: 048
     Dates: start: 20030408
  4. ORTHO TRI-CYCLEN [Concomitant]

REACTIONS (13)
  - SCAR EXCISION [None]
  - HAEMORRHAGE [None]
  - IRON DEFICIENCY ANAEMIA [None]
  - ANXIETY [None]
  - INSOMNIA [None]
  - DEPRESSION [None]
  - CROHN'S DISEASE [None]
  - INFLAMMATORY BOWEL DISEASE [None]
  - INTESTINAL STENOSIS [None]
  - OOPHORECTOMY [None]
  - INTESTINAL OBSTRUCTION [None]
  - ARTHRITIS [None]
  - SUICIDAL IDEATION [None]
